FAERS Safety Report 25544404 (Version 1)
Quarter: 2025Q3

REPORT INFORMATION
  Report Type: Spontaneous
  Country: CN (occurrence: CN)
  Receive Date: 20250711
  Receipt Date: 20250711
  Transmission Date: 20251021
  Serious: Yes (Hospitalization, Disabling)
  Sender: PFIZER
  Company Number: CN-PFIZER INC-PV202500081848

PATIENT
  Age: 11 Year
  Sex: Female
  Weight: 40 kg

DRUGS (2)
  1. METHOTREXATE SODIUM [Suspect]
     Active Substance: METHOTREXATE SODIUM
     Indication: B-cell type acute leukaemia
     Dosage: 64 ML, 1X/DAY
     Route: 041
     Dates: start: 20250531, end: 20250601
  2. SODIUM CHLORIDE [Concomitant]
     Active Substance: SODIUM CHLORIDE
     Indication: Vehicle solution use
     Dosage: 550 ML, 1X/DAY
     Route: 041
     Dates: start: 20250531, end: 20250601

REACTIONS (3)
  - Neurological symptom [Recovering/Resolving]
  - Central nervous system leukaemia [Recovering/Resolving]
  - Central nervous system injury [Recovering/Resolving]

NARRATIVE: CASE EVENT DATE: 20250609
